FAERS Safety Report 10160603 (Version 2)
Quarter: 2014Q2

REPORT INFORMATION
  Report Type: Report from Study
  Country: US (occurrence: US)
  Receive Date: 20140508
  Receipt Date: 20140508
  Transmission Date: 20141212
  Serious: Yes (Other)
  Sender: FDA-Public Use
  Company Number: US-BRISTOL-MYERS SQUIBB COMPANY-15894249

PATIENT
  Age: 63 Year
  Sex: Female

DRUGS (1)
  1. ORENCIA [Suspect]
     Dosage: USING FOR 4 YEARS.
     Route: 042

REACTIONS (3)
  - Pulmonary mass [Unknown]
  - Stress cardiomyopathy [Unknown]
  - Asthma [Unknown]
